FAERS Safety Report 9132332 (Version 1)
Quarter: 2013Q1

REPORT INFORMATION
  Report Type: Spontaneous
  Country: US (occurrence: US)
  Receive Date: 20130301
  Receipt Date: 20130301
  Transmission Date: 20140127
  Serious: Yes (Hospitalization)
  Sender: FDA-Public Use
  Company Number: US-ROCHE-1192844

PATIENT
  Sex: Female

DRUGS (3)
  1. BONIVA [Suspect]
     Indication: OSTEOPOROSIS
     Route: 048
  2. ACTONEL [Suspect]
     Indication: OSTEOPOROSIS
     Dosage: 30 MIN BEFORE MEAL
     Route: 048
  3. FOSAMAX [Suspect]
     Indication: OSTEOPOROSIS
     Dosage: EMPTY STOMACH
     Route: 048

REACTIONS (2)
  - Femur fracture [Unknown]
  - Humerus fracture [Unknown]
